FAERS Safety Report 7445373-0 (Version None)
Quarter: 2011Q2

REPORT INFORMATION
  Report Type: 
  Country: None (occurrence: None)
  Receive Date: 20110429
  Receipt Date: 20100719
  Transmission Date: 20111010
  Serious: No
  Sender: FDA-Public Use
  Company Number: A0871151A

PATIENT
  Age: 34 Year
  Sex: Female
  Weight: 70.5 kg

DRUGS (2)
  1. PRENATAL VITAMINS [Concomitant]
  2. ZOFRAN [Suspect]
     Indication: HYPEREMESIS GRAVIDARUM
     Dosage: 4MG TWICE PER DAY
     Route: 048
     Dates: start: 20100701, end: 20100819

REACTIONS (3)
  - DRUG EXPOSURE DURING PREGNANCY [None]
  - ASTHENIA [None]
  - CHILLS [None]
